FAERS Safety Report 8563860 (Version 4)
Quarter: 2013Q2

REPORT INFORMATION
  Report Type: Spontaneous
  Country: BE (occurrence: BE)
  Receive Date: 20120515
  Receipt Date: 20130610
  Transmission Date: 20140414
  Serious: Yes (Death, Other)
  Sender: FDA-Public Use
  Company Number: BE-BAYER-2012-046837

PATIENT
  Age: 19 Year
  Sex: Female
  Weight: 50 kg

DRUGS (3)
  1. AVELOX [Suspect]
     Indication: MONONUCLEOSIS SYNDROME
     Dosage: 400 MG, QD
     Route: 048
     Dates: start: 20120413, end: 20120417
  2. MOTILIUM [Suspect]
     Dosage: 10 MG, UNK
     Route: 048
     Dates: start: 20120412, end: 20120416
  3. AMOXICILLIN [Concomitant]
     Indication: ACUTE TONSILLITIS
     Dosage: UNK
     Dates: start: 2012, end: 2012

REACTIONS (8)
  - Torsade de pointes [Fatal]
  - Malaise [Fatal]
  - Syncope [Fatal]
  - Vomiting [Recovered/Resolved]
  - Sudden death [Fatal]
  - Cardiac arrest [None]
  - Hepatitis fulminant [None]
  - Myocarditis [None]
